FAERS Safety Report 6807674-6 (Version None)
Quarter: 2010Q2

REPORT INFORMATION
  Report Type: 
  Country: None (occurrence: None)
  Receive Date: 20100629
  Receipt Date: 20081111
  Transmission Date: 20101027
  Serious: No
  Sender: FDA-Public Use
  Company Number: US-PFIZER INC-2008095493

PATIENT
  Age: 17 Year
  Sex: Female

DRUGS (1)
  1. ZYVOX [Suspect]
     Indication: PERIORBITAL ABSCESS
     Route: 048
     Dates: start: 20080701

REACTIONS (2)
  - HYPOAESTHESIA [None]
  - SKIN INFECTION [None]
